FAERS Safety Report 6859611-6 (Version None)
Quarter: 2010Q3

REPORT INFORMATION
  Report Type: 
  Country: None (occurrence: None)
  Receive Date: 20100719
  Receipt Date: 20080507
  Transmission Date: 20110219
  Serious: Yes (Death)
  Sender: FDA-Public Use
  Company Number: US-PFIZER INC-2008019745

PATIENT
  Age: 82 Year
  Sex: Male
  Weight: 59.9 kg

DRUGS (10)
  1. CHANTIX [Suspect]
     Indication: SMOKING CESSATION THERAPY
     Route: 048
  2. CHANTIX [Suspect]
     Indication: CHRONIC OBSTRUCTIVE PULMONARY DISEASE
  3. ADVAIR DISKUS 100/50 [Concomitant]
     Dosage: 250-50MCG,TWICE DAILY
     Route: 055
  4. ATENOLOL [Concomitant]
     Route: 048
  5. COMBIVENT [Concomitant]
     Dosage: 103-18MCG/ACT,2 PUFFS 4 TIMES DAILY
     Route: 055
  6. COUMADIN [Concomitant]
     Route: 048
     Dates: start: 20070601
  7. LISINOPRIL [Concomitant]
     Route: 048
  8. MULTIIVITAMINS [Concomitant]
     Dosage: 1 TABLET,DAILY
     Route: 048
  9. OMEPRAZOLE [Concomitant]
     Route: 048
  10. WARFARIN SODIUM [Concomitant]
     Dosage: 4MG TABLET DAILY,AS DIRECTED
     Route: 048

REACTIONS (1)
  - COMPLETED SUICIDE [None]
